FAERS Safety Report 15758265 (Version 2)
Quarter: 2019Q1

REPORT INFORMATION
  Report Type: Spontaneous
  Country: US (occurrence: US)
  Receive Date: 20181225
  Receipt Date: 20190107
  Transmission Date: 20190417
  Serious: Yes (Hospitalization, Other)
  Sender: FDA-Public Use
  Company Number: US-ACCORD-096898

PATIENT
  Age: 26 Year
  Sex: Male

DRUGS (11)
  1. METHOTREXATE. [Suspect]
     Active Substance: METHOTREXATE
     Indication: ACUTE LYMPHOCYTIC LEUKAEMIA
     Dosage: SIX DOSES OF TRIPLE INTRATHECAL CHEMOTHERAPY
     Route: 037
  2. MIDAZOLAM [Concomitant]
     Active Substance: MIDAZOLAM HYDROCHLORIDE
     Indication: SEDATION
  3. LACOSAMIDE. [Concomitant]
     Active Substance: LACOSAMIDE
     Indication: SEIZURE
  4. CYTARABINE/CYTARABINE HYDROCHLORIDE/CYTARABINE OCFOSFATE [Suspect]
     Active Substance: CYTARABINE
     Indication: ACUTE LYMPHOCYTIC LEUKAEMIA
     Dosage: SIX DOSES OF TRIPLE INTRATHECAL CHEMOTHERAPY
     Route: 037
  5. LEVETIRACETAM. [Concomitant]
     Active Substance: LEVETIRACETAM
     Indication: SEIZURE
  6. VALPROIC ACID. [Concomitant]
     Active Substance: VALPROIC ACID
     Indication: SEIZURE
  7. HYDROCORTISONE. [Suspect]
     Active Substance: HYDROCORTISONE
     Indication: ACUTE LYMPHOCYTIC LEUKAEMIA
     Dosage: SIX DOSES OF TRIPLE INTRATHECAL CHEMOTHERAPY
     Route: 037
  8. BLINATUMOMAB [Suspect]
     Active Substance: BLINATUMOMAB
     Indication: ACUTE LYMPHOCYTIC LEUKAEMIA
     Dosage: INFUSION IN 28-DAY CYCLES. ESCALATED TO 28 MCG DAILY ON DAY 8
  9. LORAZEPAM. [Concomitant]
     Active Substance: LORAZEPAM
     Indication: SEIZURE
  10. PROPOFOL. [Concomitant]
     Active Substance: PROPOFOL
     Indication: SEDATION
  11. CLONAZEPAM. [Concomitant]
     Active Substance: CLONAZEPAM
     Indication: SEIZURE

REACTIONS (13)
  - Confusional state [Recovering/Resolving]
  - Bradycardia [Unknown]
  - Hypoxia [Recovering/Resolving]
  - Speech disorder [Recovered/Resolved]
  - Incontinence [Recovered/Resolved]
  - Asthenia [Recovered/Resolved]
  - Mental status changes [Recovered/Resolved]
  - Unresponsive to stimuli [Recovering/Resolving]
  - Pancytopenia [Unknown]
  - Febrile neutropenia [Unknown]
  - Oral candidiasis [Unknown]
  - Pneumonia aspiration [Unknown]
  - Disorientation [Recovering/Resolving]
